FAERS Safety Report 7301849-8 (Version None)
Quarter: 2011Q1

REPORT INFORMATION
  Report Type: 
  Country: None (occurrence: None)
  Receive Date: 20110218
  Receipt Date: 20100111
  Transmission Date: 20110831
  Serious: Yes (Other)
  Sender: FDA-Public Use
  Company Number: US-BAYER-200943356NA

PATIENT
  Sex: Male

DRUGS (22)
  1. HEPARIN [Concomitant]
  2. VISIPAQUE [IODINE,IODIXANOL] [Concomitant]
     Indication: FISTULOGRAM
     Dosage: 100 ML, ONCE
     Dates: start: 20050713, end: 20050713
  3. TUMS [CALCIUM CARBONATE] [Concomitant]
  4. OXYCODONE [Concomitant]
  5. CLOBETASOL PROPIONATE [Concomitant]
  6. SEROQUEL [Concomitant]
  7. OMNISCAN [Suspect]
     Indication: NUCLEAR MAGNETIC RESONANCE IMAGING
  8. VISIPAQUE [IODINE,IODIXANOL] [Concomitant]
     Indication: SCAN WITH CONTRAST
     Dosage: 50 ML, ONCE
     Dates: start: 20051101, end: 20051101
  9. QUINAMM [Concomitant]
     Dosage: 325 MG, QD
  10. PHOSLO [Concomitant]
  11. ALPRAZOLAM [Concomitant]
  12. METOPROLOL [Concomitant]
  13. GADOLINIUM IN UNSPECIFIED DRUG [Suspect]
     Dosage: UNK
  14. VICODIN [Concomitant]
  15. ASPIRIN [Concomitant]
     Dosage: 81 MG, QD
  16. XANAX [Concomitant]
     Dosage: 0.5 MG, PRN
  17. MAGNEVIST [Suspect]
     Indication: NUCLEAR MAGNETIC RESONANCE IMAGING
     Dosage: UNK
     Dates: start: 20050617, end: 20050617
  18. MAGNEVIST [Suspect]
  19. OMNIPAQUE 140 [Concomitant]
     Indication: COMPUTERISED TOMOGRAM
     Dosage: 147 ML, ONCE
     Dates: start: 20050717, end: 20050717
  20. NEPHROVITE [VIT C,VIT H,B5,B12,B9,B3,B6,B2,B1 HCL] [Concomitant]
     Dosage: 1 DF, QD
  21. CIPROFLOXACIN [Concomitant]
     Dosage: 250 MG, BID
  22. RENA-VITE [Concomitant]

REACTIONS (11)
  - PRURITUS GENERALISED [None]
  - PAIN [None]
  - XERODERMA [None]
  - SKIN INDURATION [None]
  - NEPHROGENIC SYSTEMIC FIBROSIS [None]
  - RASH PAPULAR [None]
  - SKIN FIBROSIS [None]
  - RASH ERYTHEMATOUS [None]
  - SKIN PLAQUE [None]
  - JOINT STIFFNESS [None]
  - SKIN HYPERTROPHY [None]
